FAERS Safety Report 8025022-3 (Version None)
Quarter: 2011Q4

REPORT INFORMATION
  Report Type: 
  Country: None (occurrence: None)
  Receive Date: 20111130
  Receipt Date: 20101013
  Transmission Date: 20120403
  Serious: Yes (Disabling)
  Sender: FDA-Public Use
  Company Number: TRP_07328_2010

PATIENT
  Sex: Male
  Weight: 63.5036 kg

DRUGS (3)
  1. INTERFERON ALFACON-1 (INTERFERON ALFACON-1) (15 MICROGRAM) [Suspect]
     Indication: HEPATITIS C
     Dosage: 15 MCG, 1 IN 1 D, SUBCUTANEOUS
     Route: 058
     Dates: start: 20100616, end: 20100920
  2. CYMBALTA [Concomitant]
  3. RIBAVIRIN [Suspect]
     Indication: HEPATITIS C
     Dosage: 1000 MILLIGRAM (400 MG QAM AND 600 MG QPM), ORAL
     Route: 048
     Dates: start: 20100616, end: 20100920

REACTIONS (3)
  - DEPRESSION [None]
  - FATIGUE [None]
  - MYALGIA [None]
